FAERS Safety Report 10921066 (Version 1)
Quarter: 2015Q1

REPORT INFORMATION
  Report Type: Spontaneous
  Country: ES (occurrence: None)
  Receive Date: 20150312
  Receipt Date: 20150312
  Transmission Date: 20150721
  Serious: Yes (Other)
  Sender: FDA-Public Use
  Company Number: 2271975

PATIENT
  Age: 80 Year
  Sex: Male

DRUGS (5)
  1. BEVACIZUMAB [Suspect]
     Active Substance: BEVACIZUMAB
     Indication: ADENOCARCINOMA OF COLON
     Dosage: CYCLICAL
  2. RALTITREXED DISODIUM [Suspect]
     Active Substance: RALTITREXED
     Indication: ADENOCARCINOMA OF COLON
     Dates: start: 20100304, end: 20100528
  3. 5-FLUOROURACIL /00098801/ [Suspect]
     Active Substance: FLUOROURACIL
     Indication: ADENOCARCINOMA OF COLON
     Dosage: CYCLICAL
  4. OXALIPLATIN. [Suspect]
     Active Substance: OXALIPLATIN
     Indication: ADENOCARCINOMA OF COLON
     Dosage: CYCLICAL
  5. FOLINIC ACID [Suspect]
     Active Substance: LEUCOVORIN
     Indication: ADENOCARCINOMA OF COLON
     Dosage: CYCLICAL

REACTIONS (11)
  - Acute kidney injury [None]
  - Septic shock [None]
  - Neoplasm progression [None]
  - Anaemia [None]
  - Decreased appetite [None]
  - Vomiting [None]
  - Asthenia [None]
  - Nausea [None]
  - Hepatotoxicity [None]
  - Diarrhoea [None]
  - Drug effect decreased [None]
